FAERS Safety Report 4383243-5 (Version None)
Quarter: 2004Q2

REPORT INFORMATION
  Report Type: 
  Country: None (occurrence: None)
  Receive Date: 20040618
  Receipt Date: 20040528
  Transmission Date: 20050107
  Serious: Yes (Hospitalization, Other)
  Sender: FDA-Public Use
  Company Number: USA030843558

PATIENT
  Age: 58 Year
  Sex: Female
  Weight: 92 kg

DRUGS (12)
  1. HUMULIN 70/30 [Suspect]
     Indication: DIABETES MELLITUS
     Dosage: 11 U/1 DAY
     Dates: start: 19930101
  2. HUMULIN R [Suspect]
     Dates: start: 20030401
  3. FORTEO [Suspect]
     Indication: OSTEOPOROSIS
     Dosage: 20 MG/1 DAY
     Dates: start: 20030601
  4. ACTOS (PIOGLITAZONE) [Concomitant]
  5. GABAPENTIN [Concomitant]
  6. DETROL [Concomitant]
  7. PREDNISONE [Concomitant]
  8. IRON [Concomitant]
  9. PREVACID [Concomitant]
  10. LIPITOR [Concomitant]
  11. SYNTHROID [Concomitant]
  12. DIOVAN [Concomitant]

REACTIONS (15)
  - BACK INJURY [None]
  - BACK PAIN [None]
  - BLOOD CHOLESTEROL INCREASED [None]
  - BLOOD IRON DECREASED [None]
  - GASTRIC DISORDER [None]
  - HYPERTENSION [None]
  - HYPOKINESIA [None]
  - INFECTION [None]
  - OSTEOPOROSIS [None]
  - PELVIC FRACTURE [None]
  - RENAL FAILURE [None]
  - THERMAL BURN [None]
  - THYROID DISORDER [None]
  - URINARY INCONTINENCE [None]
  - WEIGHT INCREASED [None]
